FAERS Safety Report 8898866 (Version 1)
Quarter: 2012Q4

REPORT INFORMATION
  Report Type: 
  Country: US (occurrence: US)
  Receive Date: 20121108
  Receipt Date: 20121108
  Transmission Date: 20130627
  Serious: No
  Sender: FDA-Public Use
  Company Number: US-AMGEN-USASP2012027978

PATIENT
  Age: 61 Year
  Sex: Male

DRUGS (7)
  1. ENBREL [Suspect]
     Indication: PRODUCT USED FOR UNKNOWN INDICATION
     Dosage: 25 mg, 2 times/wk
     Route: 058
  2. MULTIVITAMIN                       /00097801/ [Concomitant]
  3. FISH OIL [Concomitant]
  4. GLUCOSAMIN CHONDROITIN             /01430901/ [Concomitant]
  5. ZINC [Concomitant]
     Dosage: 30 mg, UNK
  6. VITAMIN C                          /00008001/ [Concomitant]
     Dosage: 100 mg, UNK
  7. ADVIL /00109201/ [Concomitant]
     Dosage: 200 mg, UNK

REACTIONS (2)
  - Ear infection [Recovered/Resolved]
  - Sinusitis [Recovered/Resolved]
